FAERS Safety Report 21866430 (Version 2)
Quarter: 2023Q1

REPORT INFORMATION
  Report Type: Spontaneous
  Country: US (occurrence: US)
  Receive Date: 20230116
  Receipt Date: 20230303
  Transmission Date: 20230417
  Serious: No
  Sender: FDA-Public Use
  Company Number: US-BRISTOL-MYERS SQUIBB COMPANY-2023-006356

PATIENT
  Age: 73 Year
  Sex: Male
  Weight: 102.97 kg

DRUGS (1)
  1. POMALYST [Suspect]
     Active Substance: POMALIDOMIDE
     Indication: Plasma cell myeloma
     Dosage: FREQUENCY: 21DAYS ON 7 DAYS OFF
     Route: 048
     Dates: start: 20210401

REACTIONS (3)
  - Productive cough [Recovering/Resolving]
  - Hyperhidrosis [Recovering/Resolving]
  - Fatigue [Unknown]
